FAERS Safety Report 20658926 (Version 2)
Quarter: 2022Q2

REPORT INFORMATION
  Report Type: Report from Study
  Country: US (occurrence: US)
  Receive Date: 20220331
  Receipt Date: 20220418
  Transmission Date: 20220720
  Serious: Yes (Hospitalization, Other)
  Sender: FDA-Public Use
  Company Number: US-XERIS PHARMACEUTICALS-2022XER00002

PATIENT
  Age: 49 Year
  Sex: Male

DRUGS (9)
  1. KEVEYIS [Suspect]
     Active Substance: DICHLORPHENAMIDE
     Indication: Paralysis
     Dosage: 25 MG, 2X/DAY
     Route: 048
     Dates: start: 20190317
  2. KEVEYIS [Suspect]
     Active Substance: DICHLORPHENAMIDE
     Indication: Familial periodic paralysis
     Dosage: 1 AND 1/2 TABLET (75 MG), 2X/DAY
     Route: 048
  3. KEVEYIS [Suspect]
     Active Substance: DICHLORPHENAMIDE
     Dosage: 1/2 TABLET (25 MG), 2X/DAY (IN THE MORNING AND AFTERNOON)
     Route: 048
     Dates: end: 2022
  4. KEVEYIS [Suspect]
     Active Substance: DICHLORPHENAMIDE
     Dosage: 1/2 TABLET (25 MG), 2X/DAY (IN THE MORNING AND AFTERNOON)
     Route: 048
     Dates: start: 2022
  5. ACTOS [Suspect]
     Active Substance: PIOGLITAZONE HYDROCHLORIDE
     Dosage: UNK
  6. ASCORBIC ACID [Suspect]
     Active Substance: ASCORBIC ACID
     Dosage: UNK
     Dates: start: 202203
  7. HYDROCHLOROTHIAZIDE [Concomitant]
     Active Substance: HYDROCHLOROTHIAZIDE
  8. UNSPECIFIED K+ INTAKE (POWDER) [Concomitant]
  9. UNSPECIFIED K+ INTAKE (LIQUID) [Concomitant]

REACTIONS (13)
  - Metabolic alkalosis [Unknown]
  - Paralysis [Recovered/Resolved]
  - Nephrolithiasis [Recovering/Resolving]
  - Hypokalaemia [Unknown]
  - Abdominal discomfort [Unknown]
  - Tinnitus [Recovering/Resolving]
  - Asthenia [Not Recovered/Not Resolved]
  - Pain [Not Recovered/Not Resolved]
  - Sensitive skin [Not Recovered/Not Resolved]
  - Stress [Recovered/Resolved]
  - Muscle spasms [Not Recovered/Not Resolved]
  - Muscle twitching [Not Recovered/Not Resolved]
  - Blood potassium abnormal [Unknown]

NARRATIVE: CASE EVENT DATE: 20220308
